FAERS Safety Report 6443953-2 (Version None)
Quarter: 2009Q4

REPORT INFORMATION
  Report Type: 
  Country: None (occurrence: None)
  Receive Date: 20091113
  Receipt Date: 20091105
  Transmission Date: 20100525
  Serious: Yes (Death)
  Sender: FDA-Public Use
  Company Number: 007977

PATIENT
  Age: 5 Month
  Sex: 0

DRUGS (6)
  1. BUSULFEX [Suspect]
     Indication: STEM CELL TRANSPLANT
  2. ETOPOSIDE [Concomitant]
  3. CYCLOPHOSPHAMIDE [Concomitant]
  4. ANTI-CD2 [Concomitant]
  5. CAMPATH USA (ALEMTUZUMAB) [Concomitant]
  6. ANTI-LFA-1 [Concomitant]

REACTIONS (2)
  - INFECTION [None]
  - VENOOCCLUSIVE DISEASE [None]
